FAERS Safety Report 5922814-9 (Version None)
Quarter: 2008Q4

REPORT INFORMATION
  Report Type: 
  Country: None (occurrence: None)
  Receive Date: 20081017
  Receipt Date: 20081009
  Transmission Date: 20090506
  Serious: No
  Sender: FDA-Public Use
  Company Number: US-B.I. PHARMACEUTICALS,INC./RIDGEFIELD-2008-BP-13932BP

PATIENT
  Age: 41 Year
  Sex: Male
  Weight: 104 kg

DRUGS (9)
  1. MIRAPEX [Suspect]
     Indication: RESTLESS LEGS SYNDROME
     Dosage: .25MG
     Route: 048
     Dates: start: 20080805
  2. PEGASYS [Concomitant]
  3. RIBAVIRIN [Concomitant]
     Dosage: 1200MG
  4. LEXAPRO [Concomitant]
     Dosage: 20MG
  5. SENOKOT [Concomitant]
  6. FERROUS SULFATE [Concomitant]
     Dosage: 650MG
  7. LIZENOPRIL HCTZ [Concomitant]
  8. ATENOL [Concomitant]
     Dosage: 50MG
  9. DARVOCET-N 100 [Concomitant]

REACTIONS (1)
  - DRUG EFFECT DECREASED [None]
